FAERS Safety Report 20491483 (Version 2)
Quarter: 2022Q3

REPORT INFORMATION
  Report Type: Spontaneous
  Country: US (occurrence: None)
  Receive Date: 20220218
  Receipt Date: 20220914
  Transmission Date: 20221027
  Serious: Yes (Other)
  Sender: FDA-Public Use
  Company Number: 2022A071042

PATIENT
  Age: 63 Year
  Sex: Female
  Weight: 60.1 kg

DRUGS (45)
  1. NEXIUM [Suspect]
     Active Substance: ESOMEPRAZOLE MAGNESIUM
     Indication: Dyspepsia
     Route: 048
     Dates: start: 2010, end: 2021
  2. PRILOSEC [Suspect]
     Active Substance: OMEPRAZOLE MAGNESIUM
     Indication: Dyspepsia
     Route: 048
     Dates: start: 2010, end: 2021
  3. PRILOSEC [Suspect]
     Active Substance: OMEPRAZOLE MAGNESIUM
     Indication: Dyspepsia
     Dosage: GENERIC
     Route: 065
     Dates: start: 2010, end: 2021
  4. PRILOSEC OTC [Suspect]
     Active Substance: OMEPRAZOLE MAGNESIUM
     Indication: Dyspepsia
     Route: 048
  5. PREVACID [Suspect]
     Active Substance: LANSOPRAZOLE
     Indication: Dyspepsia
     Route: 065
  6. PROTONIX [Suspect]
     Active Substance: PANTOPRAZOLE SODIUM
     Indication: Dyspepsia
     Route: 065
     Dates: end: 2021
  7. PROTONIX [Suspect]
     Active Substance: PANTOPRAZOLE SODIUM
     Indication: Dyspepsia
     Dosage: GENERIC
     Route: 065
     Dates: start: 2013, end: 2021
  8. PROTONIX [Suspect]
     Active Substance: PANTOPRAZOLE SODIUM
     Indication: Dyspepsia
     Route: 030
     Dates: end: 2021
  9. AZITHROMYCIN [Concomitant]
     Active Substance: AZITHROMYCIN
  10. CEFUROXIME [Concomitant]
     Active Substance: CEFUROXIME
  11. CIPROFLOXACIN [Concomitant]
     Active Substance: CIPROFLOXACIN
  12. DOXYCYCLINE [Concomitant]
     Active Substance: DOXYCYCLINE
  13. FUROSEMIDE [Concomitant]
     Active Substance: FUROSEMIDE
  14. KETOROLAC [Concomitant]
     Active Substance: KETOROLAC TROMETHAMINE
  15. LEVAQUIN [Concomitant]
     Active Substance: LEVOFLOXACIN
  16. LEVOTHYROXINE [Concomitant]
     Active Substance: LEVOTHYROXINE
  17. LITHIUM [Concomitant]
     Active Substance: LITHIUM
  18. MELOXICAM [Concomitant]
     Active Substance: MELOXICAM
  19. SULFAMETHOXAZOLE\TRIMETHOPRIM [Concomitant]
     Active Substance: SULFAMETHOXAZOLE\TRIMETHOPRIM
  20. TRAMADOL [Concomitant]
     Active Substance: TRAMADOL
  21. DICLOFENAC [Concomitant]
     Active Substance: DICLOFENAC
  22. LITHIUM CARBONATE [Concomitant]
     Active Substance: LITHIUM CARBONATE
  23. CITALOPRAM [Concomitant]
     Active Substance: CITALOPRAM HYDROBROMIDE
  24. TOPIRAMATE [Concomitant]
     Active Substance: TOPIRAMATE
  25. PRAMIPEXOLE [Concomitant]
     Active Substance: PRAMIPEXOLE
  26. ACETAMINOPHEN\HYDROCODONE BITARTRATE [Concomitant]
     Active Substance: ACETAMINOPHEN\HYDROCODONE BITARTRATE
  27. BENZONATATE [Concomitant]
     Active Substance: BENZONATATE
  28. ACETAMINOPHEN\OXYCODONE HYDROCHLORIDE [Concomitant]
     Active Substance: ACETAMINOPHEN\OXYCODONE HYDROCHLORIDE
  29. KLOR-CON [Concomitant]
     Active Substance: POTASSIUM CHLORIDE
  30. AFLURIA NOS [Concomitant]
     Active Substance: INFLUENZA VIRUS VACCINE TRIVALENT TYPE A+B AFLURIA
  31. CYANOCOBALAMIN [Concomitant]
     Active Substance: CYANOCOBALAMIN
  32. METHYLPREDNISOLONE [Concomitant]
     Active Substance: METHYLPREDNISOLONE
  33. LAMOTRIGINE [Concomitant]
     Active Substance: LAMOTRIGINE
  34. ABILIFY [Concomitant]
     Active Substance: ARIPIPRAZOLE
  35. MIRAPEX [Concomitant]
     Active Substance: PRAMIPEXOLE DIHYDROCHLORIDE
  36. CARISOPRODOL [Concomitant]
     Active Substance: CARISOPRODOL
  37. ARICEPT [Concomitant]
     Active Substance: DONEPEZIL HYDROCHLORIDE
  38. LIOTHYRONINE [Concomitant]
     Active Substance: LIOTHYRONINE
  39. COLCHICINE [Concomitant]
     Active Substance: COLCHICINE
  40. METRONIDAZOLE [Concomitant]
     Active Substance: METRONIDAZOLE
  41. ZYVOX [Concomitant]
     Active Substance: LINEZOLID
  42. DICYCLOMINE [Concomitant]
     Active Substance: DICYCLOMINE HYDROCHLORIDE
  43. WELCHOL [Concomitant]
     Active Substance: COLESEVELAM HYDROCHLORIDE
  44. CREON [Concomitant]
     Active Substance: PANCRELIPASE AMYLASE\PANCRELIPASE LIPASE\PANCRELIPASE PROTEASE
  45. FOLIC ACID [Concomitant]
     Active Substance: FOLIC ACID

REACTIONS (4)
  - Acute kidney injury [Not Recovered/Not Resolved]
  - Chronic kidney disease [Not Recovered/Not Resolved]
  - End stage renal disease [Not Recovered/Not Resolved]
  - Renal failure [Unknown]

NARRATIVE: CASE EVENT DATE: 20170101
